FAERS Safety Report 23735111 (Version 1)
Quarter: 2024Q2

REPORT INFORMATION
  Report Type: Spontaneous
  Country: US (occurrence: US)
  Receive Date: 20240412
  Receipt Date: 20240412
  Transmission Date: 20240716
  Serious: Yes (Hospitalization, Other)
  Sender: FDA-Public Use
  Company Number: US-ALEMBIC-2024SCAL000391

PATIENT

DRUGS (2)
  1. LACOSAMIDE [Suspect]
     Active Substance: LACOSAMIDE
     Indication: Seizure
     Dosage: 100 MG, QD
     Route: 065
  2. LACOSAMIDE [Suspect]
     Active Substance: LACOSAMIDE
     Dosage: 300 MG, QD
     Route: 065

REACTIONS (10)
  - Bundle branch block right [Unknown]
  - Bundle branch block left [Unknown]
  - Blood pressure increased [Unknown]
  - Condition aggravated [Unknown]
  - Conduction disorder [Unknown]
  - Disease progression [Unknown]
  - Atrioventricular block complete [Unknown]
  - Atrioventricular block first degree [Unknown]
  - Syncope [Unknown]
  - Presyncope [Unknown]
